FAERS Safety Report 9577015 (Version 1)
Quarter: 2013Q4

REPORT INFORMATION
  Report Type: Spontaneous
  Country: US (occurrence: US)
  Receive Date: 20131001
  Receipt Date: 20131001
  Transmission Date: 20140711
  Serious: No
  Sender: FDA-Public Use
  Company Number: US-AMGEN-USASP2013005815

PATIENT
  Sex: Male
  Weight: 78.01 kg

DRUGS (6)
  1. ENBREL [Suspect]
     Indication: PSORIASIS
     Dosage: 50 MG, QWK
     Route: 058
  2. DHEA [Concomitant]
     Dosage: 25 MG, UNK
  3. FISH OIL [Concomitant]
     Dosage: UNK
  4. MULTIVITAMINS, PLAIN [Concomitant]
     Dosage: UNK
  5. STELARA [Concomitant]
     Dosage: 90 MG/ML, UNK
  6. GINKGO BILOBA [Concomitant]
     Dosage: 100 MG, UNK

REACTIONS (1)
  - Therapeutic response decreased [Unknown]
